FAERS Safety Report 6684927-6 (Version None)
Quarter: 2010Q2

REPORT INFORMATION
  Report Type: 
  Country: None (occurrence: None)
  Receive Date: 20100416
  Receipt Date: 20100408
  Transmission Date: 20101027
  Serious: Yes (Hospitalization, Other)
  Sender: FDA-Public Use
  Company Number: ES-AMGEN-QUU395141

PATIENT
  Sex: Female

DRUGS (1)
  1. NPLATE [Suspect]
     Indication: PRE-EXISTING DISEASE

REACTIONS (4)
  - DRUG INEFFECTIVE [None]
  - HAEMORRHAGE [None]
  - MULTI-ORGAN FAILURE [None]
  - PLATELET COUNT DECREASED [None]
